FAERS Safety Report 5399811-8 (Version None)
Quarter: 2007Q3

REPORT INFORMATION
  Report Type: 
  Country: None (occurrence: None)
  Receive Date: 20070730
  Receipt Date: 20070717
  Transmission Date: 20080115
  Serious: Yes (Hospitalization)
  Sender: FDA-Public Use
  Company Number: JP-SP-2006-02967

PATIENT
  Age: 54 Year

DRUGS (2)
  1. IMMUCYST [Suspect]
     Indication: BLADDER CANCER
     Route: 043
     Dates: start: 20061030, end: 20061214
  2. IMMUCYST [Suspect]
     Route: 043
     Dates: start: 20061030, end: 20061214

REACTIONS (2)
  - HEPATIC FUNCTION ABNORMAL [None]
  - INCORRECT DOSE ADMINISTERED [None]
